FAERS Safety Report 4346855-0 (Version None)
Quarter: 2004Q1

REPORT INFORMATION
  Report Type: 
  Country: None (occurrence: None)
  Receive Date: 20040329
  Receipt Date: 20031209
  Transmission Date: 20041129
  Serious: No
  Sender: FDA-Public Use
  Company Number: USA031254357

PATIENT
  Sex: Female

DRUGS (5)
  1. STRATTERA [Suspect]
     Dosage: 40 MG/DAY
  2. ZOLOFT [Concomitant]
  3. SONATA [Concomitant]
  4. SEROQUEL [Concomitant]
  5. SYNTHROID [Concomitant]

REACTIONS (1)
  - TREMOR [None]
